FAERS Safety Report 19145851 (Version 1)
Quarter: 2021Q2

REPORT INFORMATION
  Report Type: Spontaneous
  Country: US (occurrence: US)
  Receive Date: 20210416
  Receipt Date: 20210416
  Transmission Date: 20210717
  Serious: Yes (Other)
  Sender: FDA-Public Use
  Company Number: None

PATIENT
  Age: 77 Year
  Sex: Male

DRUGS (1)
  1. WARFARIN [Suspect]
     Active Substance: WARFARIN
     Dosage: ?          OTHER FREQUENCY:1 TO 1.5 TABS QD;?
     Route: 048

REACTIONS (2)
  - Product quality issue [None]
  - International normalised ratio abnormal [None]

NARRATIVE: CASE EVENT DATE: 20210416
